FAERS Safety Report 16033639 (Version 1)
Quarter: 2019Q1

REPORT INFORMATION
  Report Type: Spontaneous
  Country: US (occurrence: US)
  Receive Date: 20190205
  Receipt Date: 20190205
  Transmission Date: 20190418
  Serious: No
  Sender: FDA-Public Use
  Company Number: None

PATIENT

DRUGS (1)
  1. CYTARABINE    100 MG/ML [Suspect]
     Active Substance: CYTARABINE
     Dates: start: 20190201

REACTIONS (3)
  - Product deposit [None]
  - Intercepted product dispensing error [None]
  - Product quality issue [None]

NARRATIVE: CASE EVENT DATE: 20190201
